FAERS Safety Report 12054301 (Version 2)
Quarter: 2016Q1

REPORT INFORMATION
  Report Type: Spontaneous
  Country: JP (occurrence: JP)
  Receive Date: 20160209
  Receipt Date: 20160222
  Transmission Date: 20160526
  Serious: Yes (Death, Other)
  Sender: FDA-Public Use
  Company Number: JP-PFIZER INC-2016075649

PATIENT
  Age: 76 Year
  Sex: Female

DRUGS (6)
  1. AZULFIDINE EN-TABS [Suspect]
     Active Substance: SULFASALAZINE
     Indication: RHEUMATOID ARTHRITIS
     Dosage: 1 G, 2X/DAY
     Route: 048
     Dates: start: 20160129, end: 20160204
  2. LOXONIN [Concomitant]
     Active Substance: LOXOPROFEN SODIUM
     Dosage: 120 MG, 2X/DAY
     Route: 048
     Dates: start: 20151208, end: 20160204
  3. MYSLEE [Concomitant]
     Active Substance: ZOLPIDEM TARTRATE
     Dosage: 5 MG, 1X/DAY
     Route: 048
     Dates: start: 20151208, end: 20160204
  4. MUCOSTA [Concomitant]
     Active Substance: REBAMIPIDE
     Dosage: 200 MG, 2X/DAY
     Route: 048
     Dates: start: 20151208, end: 20160204
  5. DAIKENCHUTO [Concomitant]
     Active Substance: HERBALS
     Dosage: 7.5 G, 3X/DAY
     Route: 048
     Dates: start: 20151202, end: 20160204
  6. MUCOSOLVAN [Concomitant]
     Active Substance: AMBROXOL HYDROCHLORIDE
     Dosage: 15 MG, 3X/DAY
     Route: 048
     Dates: start: 20151209, end: 20160204

REACTIONS (1)
  - Respiratory failure [Fatal]

NARRATIVE: CASE EVENT DATE: 20160205
